FAERS Safety Report 12565463 (Version 11)
Quarter: 2018Q3

REPORT INFORMATION
  Report Type: Report from Study
  Country: CA (occurrence: CA)
  Receive Date: 20160718
  Receipt Date: 20180827
  Transmission Date: 20181010
  Serious: Yes (Death, Hospitalization, Disabling, Other)
  Sender: FDA-Public Use
  Company Number: CA-CELGENEUS-CAN-2016071611

PATIENT
  Age: 63 Year
  Sex: Female
  Weight: 63 kg

DRUGS (30)
  1. MELPHALAN. [Suspect]
     Active Substance: MELPHALAN
     Indication: PLASMA CELL MYELOMA
     Dosage: 238 MILLIGRAM
     Route: 041
     Dates: start: 20140606, end: 20140606
  2. K?DUR [Concomitant]
     Active Substance: POTASSIUM CHLORIDE
     Indication: HYPOKALAEMIA
     Route: 065
     Dates: start: 20160625
  3. ASA [Concomitant]
     Active Substance: ASPIRIN
     Indication: PROPHYLAXIS
  4. LIPOSIC [Concomitant]
     Active Substance: CARBOMER
     Indication: DRY EYE
     Route: 065
     Dates: start: 20160222, end: 20170601
  5. LATANOPROST/TIMOLOL [Concomitant]
     Active Substance: LATANOPROST\TIMOLOL
     Indication: HYPOTHYROIDISM
     Dosage: 0.5 PLUS 0.005% 1 GTT IN BOTH EYES DAILY
     Route: 065
     Dates: start: 20160222, end: 20170601
  6. FILGRASTIM [Concomitant]
     Active Substance: FILGRASTIM
     Indication: NEUTROPENIA
     Dosage: 300 MICROGRAM
     Route: 058
     Dates: start: 20160113, end: 20170601
  7. CALCIUM CARBONATE + VITAMIN D [Concomitant]
     Route: 065
     Dates: start: 20160625, end: 20170601
  8. ASA [Concomitant]
     Active Substance: ASPIRIN
     Indication: ANGIOPATHY
     Dosage: 80 MILLIGRAM
     Route: 065
     Dates: start: 20160525, end: 20170601
  9. CARBOMERE [Concomitant]
     Indication: DRY EYE
  10. BUSULFAN. [Suspect]
     Active Substance: BUSULFAN
     Indication: STEM CELL TRANSPLANT
     Dosage: 197 MILLIGRAM
     Route: 041
     Dates: start: 20140603, end: 20140605
  11. MELPHALAN. [Suspect]
     Active Substance: MELPHALAN
     Indication: STEM CELL TRANSPLANT
  12. PANTOLOC [Concomitant]
     Active Substance: PANTOPRAZOLE SODIUM
     Indication: ANTACID THERAPY
     Route: 065
     Dates: start: 20160630
  13. PANTOLOC [Concomitant]
     Active Substance: PANTOPRAZOLE SODIUM
     Route: 065
     Dates: start: 20160630, end: 20170601
  14. POTASSIUM CHLORIDE. [Concomitant]
     Active Substance: POTASSIUM CHLORIDE
     Indication: PRODUCT USED FOR UNKNOWN INDICATION
     Dosage: 20 MILLIMOLE
     Route: 065
     Dates: start: 20160622, end: 20160706
  15. LATANOPROST. [Concomitant]
     Active Substance: LATANOPROST
     Indication: GLAUCOMA
     Route: 065
     Dates: start: 20160222
  16. VELCADE [Concomitant]
     Active Substance: BORTEZOMIB
     Indication: PLASMA CELL MYELOMA
     Route: 065
     Dates: start: 20131125, end: 20170601
  17. REVLIMID [Suspect]
     Active Substance: LENALIDOMIDE
     Dosage: 10 MILLIGRAM
     Route: 048
  18. K?DUR [Concomitant]
     Active Substance: POTASSIUM CHLORIDE
     Route: 065
     Dates: start: 20160625, end: 20170601
  19. REVLIMID [Suspect]
     Active Substance: LENALIDOMIDE
     Indication: STEM CELL TRANSPLANT
     Dosage: 5 MILLIGRAM
     Route: 048
     Dates: start: 201607
  20. LEVOTHYROXINE. [Concomitant]
     Active Substance: LEVOTHYROXINE
     Indication: HYPOTHYROIDISM
     Dosage: .112 MILLIGRAM
     Route: 065
     Dates: start: 20160622, end: 20170601
  21. REVLIMID [Suspect]
     Active Substance: LENALIDOMIDE
     Indication: PLASMA CELL MYELOMA
     Dosage: 5 MILLIGRAM
     Route: 048
     Dates: start: 20140924, end: 20160621
  22. BUSULFAN. [Suspect]
     Active Substance: BUSULFAN
     Indication: PLASMA CELL MYELOMA
     Dosage: 197 MILLIGRAM
     Route: 041
     Dates: start: 20050304, end: 201406
  23. CALCIUM CARBONATE + VITAMIN D [Concomitant]
     Indication: BONE DISORDER
     Dosage: 500MG+400IU
     Route: 065
     Dates: start: 20140625, end: 20160706
  24. LATANOPROST/TIMOLOL [Concomitant]
     Active Substance: LATANOPROST\TIMOLOL
     Indication: GLAUCOMA
  25. CARBOMERE [Concomitant]
     Indication: HYPOTHYROIDISM
     Dosage: APPLY SIZE OF A PEA BOTH EYES EACH DAY AT BEDTIME
     Route: 047
     Dates: start: 20160222, end: 20160520
  26. INNOHEP [Concomitant]
     Active Substance: TINZAPARIN SODIUM
     Indication: PRODUCT USED FOR UNKNOWN INDICATION
     Route: 065
  27. THALOMID [Suspect]
     Active Substance: THALIDOMIDE
     Indication: PLASMA CELL MYELOMA
     Dosage: 100 MILLIGRAM
     Route: 048
     Dates: start: 20131203, end: 20140225
  28. PANTOPRAZOLE [Concomitant]
     Active Substance: PANTOPRAZOLE
     Indication: PRODUCT USED FOR UNKNOWN INDICATION
     Dosage: 40 MILLIGRAM
     Route: 065
     Dates: start: 20160630, end: 20160706
  29. REFRESH PLUS [Concomitant]
     Active Substance: CARBOXYMETHYLCELLULOSE SODIUM
     Indication: HYPOTHYROIDISM
     Dosage: 1 GTT IN BOTH EYES 6 TO 8 TIMES DAILY
     Route: 047
     Dates: start: 20160222, end: 20160520
  30. VELCADE [Concomitant]
     Active Substance: BORTEZOMIB
     Indication: PALLIATIVE CARE
     Route: 065
     Dates: start: 20170418, end: 20170601

REACTIONS (1)
  - Adenocarcinoma pancreas [Fatal]

NARRATIVE: CASE EVENT DATE: 20160706
